FAERS Safety Report 9177968 (Version 2)
Quarter: 2012Q4

REPORT INFORMATION
  Report Type: 
  Country: JP (occurrence: JP)
  Receive Date: 20121016
  Receipt Date: 20121023
  Transmission Date: 20130627
  Serious: Yes (Hospitalization)
  Sender: FDA-Public Use
  Company Number: JP-BRACCO-006367

PATIENT
  Age: 79 Year
  Sex: Male
  Weight: 60 kg

DRUGS (2)
  1. PROHANCE [Suspect]
     Indication: NUCLEAR MAGNETIC RESONANCE IMAGING
     Route: 042
     Dates: start: 20121003, end: 20121003
  2. PROHANCE [Suspect]
     Indication: HEPATITIS B
     Route: 042
     Dates: start: 20121003, end: 20121003

REACTIONS (1)
  - Anaphylactic shock [Recovering/Resolving]
